FAERS Safety Report 8747642 (Version 2)
Quarter: 2012Q4

REPORT INFORMATION
  Report Type: 
  Country: US (occurrence: US)
  Receive Date: 20120827
  Receipt Date: 20121001
  Transmission Date: 20130627
  Serious: Yes (Other)
  Sender: FDA-Public Use
  Company Number: US-ASTRAZENECA-2012SE60015

PATIENT
  Age: 28 Year
  Sex: Female
  Weight: 77.1 kg

DRUGS (15)
  1. NEXIUM [Suspect]
     Indication: GASTROOESOPHAGEAL REFLUX DISEASE
     Route: 048
     Dates: start: 20120725
  2. PRILOSEC [Suspect]
     Indication: GASTROOESOPHAGEAL REFLUX DISEASE
     Route: 048
     Dates: start: 2002, end: 201207
  3. UNSPECIFIED INGREDIENT [Suspect]
     Route: 065
  4. NEULASTA [Suspect]
     Indication: WHITE BLOOD CELL COUNT DECREASED
     Route: 058
     Dates: start: 201207
  5. KYTRIL [Concomitant]
     Indication: NAUSEA
     Route: 042
     Dates: start: 201207
  6. XANAX [Concomitant]
     Indication: ANXIETY
     Route: 048
     Dates: start: 201206
  7. SERTRALINE [Concomitant]
     Indication: DEPRESSION
     Route: 048
     Dates: start: 20120611
  8. HYDROCODONE ACETOMINOPHEN [Concomitant]
     Indication: BONE PAIN
     Dosage: 7.5/50 AS REQUIRED
     Route: 048
     Dates: start: 201207
  9. SINGULAIR [Concomitant]
     Indication: ASTHMA
     Route: 048
     Dates: start: 2002
  10. FIORICET [Concomitant]
     Indication: HEADACHE
     Dosage: 50/325/40MG AS REQUIRED
     Route: 048
     Dates: start: 20120705
  11. ALLEGRA [Concomitant]
     Indication: EYE PRURITUS
     Dosage: ONCE
     Route: 048
     Dates: start: 201207
  12. DEXAMETASONE [Concomitant]
     Indication: BREAST CANCER
     Route: 048
     Dates: start: 20120703
  13. PROMETHAZINE [Concomitant]
     Indication: NAUSEA
     Dosage: AS REQUIRED
     Dates: start: 201207
  14. MARINOL [Concomitant]
     Indication: NAUSEA
     Dosage: AS REQUIRED
     Dates: start: 201207
  15. IV FLUIDS [Concomitant]
     Indication: FLUID REPLACEMENT
     Route: 042
     Dates: start: 201207

REACTIONS (9)
  - Breast cancer female [Unknown]
  - Pneumothorax [Unknown]
  - Nausea [Unknown]
  - Depression [Unknown]
  - Anxiety [Unknown]
  - Bone pain [Unknown]
  - Eye pruritus [Unknown]
  - Headache [Unknown]
  - Drug ineffective [Unknown]
